FAERS Safety Report 8108982 (Version 3)
Quarter: 2014Q2

REPORT INFORMATION
  Report Type: Spontaneous
  Country: US (occurrence: US)
  Receive Date: 20110826
  Receipt Date: 20140624
  Transmission Date: 20141212
  Serious: Yes (Hospitalization)
  Sender: FDA-Public Use
  Company Number: US-GLAXOSMITHKLINE-A0888744A

PATIENT
  Sex: Male
  Weight: 91.4 kg

DRUGS (5)
  1. AVANDIA [Suspect]
     Indication: DIABETES MELLITUS
     Dosage: 4MG PER DAY
     Route: 048
     Dates: start: 200111, end: 2005
  2. ZETIA [Concomitant]
  3. LOTREL [Concomitant]
  4. TOPROL XL [Concomitant]
  5. NEXIUM [Concomitant]

REACTIONS (2)
  - Coronary artery occlusion [Recovering/Resolving]
  - Coronary artery disease [Unknown]
